FAERS Safety Report 18495652 (Version 2)
Quarter: 2020Q4

REPORT INFORMATION
  Report Type: Spontaneous
  Country: NL (occurrence: NL)
  Receive Date: 20201112
  Receipt Date: 20201130
  Transmission Date: 20210114
  Serious: Yes (Death, Other)
  Sender: FDA-Public Use
  Company Number: NL-ASTELLAS-2019US050630

PATIENT
  Sex: Female

DRUGS (2)
  1. ENZALUTAMIDE [Suspect]
     Active Substance: ENZALUTAMIDE
     Indication: SALIVARY GLAND CANCER
     Route: 065
     Dates: start: 20191107, end: 20191208
  2. ENZALUTAMIDE [Suspect]
     Active Substance: ENZALUTAMIDE
     Route: 065
     Dates: start: 20191209

REACTIONS (5)
  - Malignant neoplasm progression [Fatal]
  - Product use in unapproved indication [Unknown]
  - Fall [Unknown]
  - Product use issue [Unknown]
  - Dizziness [Recovered/Resolved]

NARRATIVE: CASE EVENT DATE: 20191107
